FAERS Safety Report 9637082 (Version 1)
Quarter: 2013Q4

REPORT INFORMATION
  Report Type: Spontaneous
  Country: US (occurrence: US)
  Receive Date: 20131022
  Receipt Date: 20131022
  Transmission Date: 20140711
  Serious: Yes (Other)
  Sender: FDA-Public Use
  Company Number: US-BRISTOL-MYERS SQUIBB COMPANY-19540632

PATIENT
  Sex: Male

DRUGS (2)
  1. METFORMIN HCL [Suspect]
  2. GLIPIZIDE [Suspect]

REACTIONS (2)
  - Coma [Unknown]
  - Blood glucose increased [Unknown]
